FAERS Safety Report 9484563 (Version 1)
Quarter: 2013Q3

REPORT INFORMATION
  Report Type: Spontaneous
  Country: US (occurrence: US)
  Receive Date: 20130828
  Receipt Date: 20130828
  Transmission Date: 20140515
  Serious: Yes (Other)
  Sender: FDA-Public Use
  Company Number: US-AMGEN-KDL426646

PATIENT
  Age: 48 Year
  Sex: Female

DRUGS (1)
  1. ENBREL [Suspect]
     Indication: RHEUMATOID ARTHRITIS
     Dosage: 50 MG, Q2WK
     Route: 058
     Dates: start: 20090212

REACTIONS (5)
  - Precancerous cells present [Recovered/Resolved]
  - Smear cervix abnormal [Recovered/Resolved]
  - Rheumatoid arthritis [Recovered/Resolved]
  - Mobility decreased [Recovered/Resolved]
  - Migraine [Recovered/Resolved]
